FAERS Safety Report 6105521-1 (Version None)
Quarter: 2009Q1

REPORT INFORMATION
  Report Type: 
  Country: None (occurrence: None)
  Receive Date: 20090306
  Receipt Date: 20090226
  Transmission Date: 20090719
  Serious: Yes (Hospitalization)
  Sender: FDA-Public Use
  Company Number: B0539145A

PATIENT
  Age: 22 Year
  Sex: Male

DRUGS (1)
  1. AUGMENTIN '125' [Suspect]
     Indication: SUBCUTANEOUS ABSCESS
     Route: 048
     Dates: start: 20080701, end: 20080705

REACTIONS (4)
  - HYPERSENSITIVITY [None]
  - PYREXIA [None]
  - RASH [None]
  - TRANSAMINASES INCREASED [None]
